FAERS Safety Report 19270610 (Version 1)
Quarter: 2021Q2

REPORT INFORMATION
  Report Type: Spontaneous
  Country: AR (occurrence: AR)
  Receive Date: 20210518
  Receipt Date: 20210518
  Transmission Date: 20210717
  Serious: Yes (Death)
  Sender: FDA-Public Use
  Company Number: AR-PFIZER INC-2021502558

PATIENT
  Age: 68 Year
  Sex: Male

DRUGS (1)
  1. GENOTROPIN [Suspect]
     Active Substance: SOMATROPIN
     Indication: HYPOPITUITARISM
     Dosage: 0.1 TO 0.5 MG, 7  TIMES A WEEK
     Dates: start: 20130813

REACTIONS (1)
  - Death [Fatal]

NARRATIVE: CASE EVENT DATE: 20210417
